FAERS Safety Report 25892067 (Version 2)
Quarter: 2025Q4

REPORT INFORMATION
  Report Type: Spontaneous
  Country: CA (occurrence: CA)
  Receive Date: 20251007
  Receipt Date: 20251201
  Transmission Date: 20260118
  Serious: Yes (Life-Threatening, Hospitalization, Other)
  Sender: SANOFI AVENTIS
  Company Number: CA-SA-2025SA297981

PATIENT
  Age: 19 Year
  Sex: Female
  Weight: 40 kg

DRUGS (8)
  1. ARAVA [Suspect]
     Active Substance: LEFLUNOMIDE
     Indication: Polyomavirus-associated nephropathy
     Dosage: 40 MG, QD
     Route: 048
     Dates: start: 20250304, end: 20250331
  2. ARANESP [Concomitant]
     Active Substance: DARBEPOETIN ALFA
     Dosage: 60 UG, QW (ONCE WEEKLY
     Route: 058
  3. CALCIUM [Concomitant]
     Active Substance: CALCIUM
     Dosage: 500 MG
     Dates: start: 2019
  4. CHOLECALCIFEROL [Concomitant]
     Active Substance: CHOLECALCIFEROL
     Dosage: 1000 U, QD ONCE DAILY IN THE MORNING
     Route: 048
     Dates: start: 2018
  5. DESOGESTREL AND ETHINYL ESTRADIOL [Concomitant]
     Active Substance: DESOGESTREL\ETHINYL ESTRADIOL
     Dosage: UNK
     Dates: start: 2018
  6. PREDNISONE [Concomitant]
     Active Substance: PREDNISONE
     Dosage: 5 MG
     Route: 048
     Dates: start: 202409
  7. TACROLIMUS [Concomitant]
     Active Substance: TACROLIMUS
     Dosage: 4 MG, BID
     Route: 048
     Dates: start: 202409
  8. VALGANCICLOVIR [Concomitant]
     Active Substance: VALGANCICLOVIR
     Dosage: 900 MG
     Route: 048
     Dates: start: 20250226, end: 20250328

REACTIONS (2)
  - Alanine aminotransferase increased [Unknown]
  - Hepatotoxicity [Unknown]

NARRATIVE: CASE EVENT DATE: 20250313
